FAERS Safety Report 8972531 (Version 1)
Quarter: 2012Q4

REPORT INFORMATION
  Report Type: 
  Country: FR (occurrence: FR)
  Receive Date: 20121218
  Receipt Date: 20121218
  Transmission Date: 20130627
  Serious: Yes (Life-Threatening, Hospitalization)
  Sender: FDA-Public Use
  Company Number: FR-009507513-1103FRA00062

PATIENT
  Age: 78 Year
  Sex: Female
  Weight: 57 kg

DRUGS (7)
  1. JANUVIA [Suspect]
     Indication: TYPE 2 DIABETES MELLITUS
     Dosage: 100 mg, qd
     Route: 048
  2. ARICEPT [Suspect]
     Indication: DEMENTIA ALZHEIMER^S TYPE
     Dosage: 10 mg, qd
     Route: 048
     Dates: start: 201003, end: 20101125
  3. ARICEPT [Suspect]
     Dosage: 10 mg, qd
     Route: 048
     Dates: start: 20101130
  4. EBIXA [Suspect]
     Indication: DEMENTIA ALZHEIMER^S TYPE
     Dosage: 10 mg, qd
     Route: 048
     Dates: start: 201003, end: 20101125
  5. EBIXA [Suspect]
     Dosage: 10 mg, qd
     Route: 048
     Dates: start: 20101130
  6. COVERSYL (PERINDOPRIL ARGININE) [Concomitant]
     Indication: HYPERTENSION
     Dates: start: 201003
  7. STILNOX [Concomitant]

REACTIONS (4)
  - Bradycardia [Recovered/Resolved]
  - Sinoatrial block [Recovered/Resolved]
  - Syncope [Recovered/Resolved]
  - Sinus arrest [Recovered/Resolved]
